FAERS Safety Report 4988122-8 (Version None)
Quarter: 2006Q2

REPORT INFORMATION
  Report Type: 
  Country: None (occurrence: None)
  Receive Date: 20060425
  Receipt Date: 20060411
  Transmission Date: 20061013
  Serious: Yes (Death)
  Sender: FDA-Public Use
  Company Number: GXKR2006KE02062

PATIENT
  Age: 7 Year
  Sex: Female

DRUGS (4)
  1. CEFTRIAXONE [Suspect]
     Indication: MENINGITIS PNEUMOCOCCAL
     Dosage: INTRAVENOUS
     Route: 042
  2. ACETAMINOPHEN [Concomitant]
  3. FLUID/ELECTROLYTE REPLACEMENT THERAPY (FLUID/ELECTROLYTE REPLACEMENT T [Concomitant]
  4. DEXAMETHASONE [Concomitant]

REACTIONS (6)
  - ANGIONEUROTIC OEDEMA [None]
  - DEPRESSED LEVEL OF CONSCIOUSNESS [None]
  - HYPERSENSITIVITY [None]
  - INTRACRANIAL PRESSURE INCREASED [None]
  - LOCALISED OEDEMA [None]
  - TONGUE OEDEMA [None]
